FAERS Safety Report 4532984-5 (Version None)
Quarter: 2004Q4

REPORT INFORMATION
  Report Type: 
  Country: None (occurrence: None)
  Receive Date: 20041206
  Receipt Date: 20041011
  Transmission Date: 20050328
  Serious: No
  Sender: FDA-Public Use
  Company Number: USA041080719

PATIENT
  Age: 45 Year
  Sex: Female
  Weight: 55 kg

DRUGS (4)
  1. FORTEO [Suspect]
     Indication: OSTEOPOROSIS
  2. CYMBALTA [Suspect]
     Indication: DEPRESSION
     Dosage: 30 MG/1 DAY
     Dates: start: 20041006
  3. VICODIN [Concomitant]
  4. AVINZA [Concomitant]

REACTIONS (4)
  - COMPRESSION FRACTURE [None]
  - FATIGUE [None]
  - MUSCLE TWITCHING [None]
  - NAUSEA [None]
